FAERS Safety Report 7496360-8 (Version None)
Quarter: 2011Q2

REPORT INFORMATION
  Report Type: 
  Country: None (occurrence: None)
  Receive Date: 20110520
  Receipt Date: 20110520
  Transmission Date: 20111010
  Serious: No
  Sender: FDA-Public Use
  Company Number: None

PATIENT
  Age: 65 Year
  Sex: Male
  Weight: 92.9874 kg

DRUGS (1)
  1. CIALIS [Suspect]
     Indication: ERECTILE DYSFUNCTION
     Dosage: 10 MG ONCE PO
     Route: 048
     Dates: start: 20110415, end: 20110415

REACTIONS (10)
  - IMPAIRED DRIVING ABILITY [None]
  - JOINT SWELLING [None]
  - IMPAIRED WORK ABILITY [None]
  - MYALGIA [None]
  - PAIN IN EXTREMITY [None]
  - BACK PAIN [None]
  - MOVEMENT DISORDER [None]
  - DRUG INEFFECTIVE [None]
  - MUSCLE SPASMS [None]
  - ECONOMIC PROBLEM [None]
